FAERS Safety Report 6392440-9 (Version None)
Quarter: 2009Q4

REPORT INFORMATION
  Report Type: 
  Country: None (occurrence: None)
  Receive Date: 20091007
  Receipt Date: 20090925
  Transmission Date: 20100525
  Serious: Yes (Hospitalization)
  Sender: FDA-Public Use
  Company Number: US-JNJFOC-20090908797

PATIENT
  Age: 4 Year
  Sex: Female
  Weight: 16.33 kg

DRUGS (3)
  1. TYLENOL [Suspect]
     Route: 048
  2. TYLENOL [Suspect]
     Indication: NASOPHARYNGITIS
     Route: 048
  3. CHILDREN'S MOTRIN [Concomitant]
     Indication: NASOPHARYNGITIS
     Route: 048

REACTIONS (5)
  - DIARRHOEA [None]
  - HEADACHE [None]
  - TRANSMISSION OF AN INFECTIOUS AGENT VIA A MEDICINAL PRODUCT [None]
  - VOMITING [None]
  - WHITE BLOOD CELL COUNT INCREASED [None]
